FAERS Safety Report 4599724-5 (Version None)
Quarter: 2005Q1

REPORT INFORMATION
  Report Type: 
  Country: None (occurrence: None)
  Receive Date: 20050307
  Receipt Date: 20050225
  Transmission Date: 20050727
  Serious: Yes (Hospitalization)
  Sender: FDA-Public Use
  Company Number: BE-JNJFOC-20041205323

PATIENT
  Sex: Female

DRUGS (16)
  1. DURAGESIC-100 [Suspect]
     Indication: PAIN
     Route: 062
  2. TAVANIC [Concomitant]
  3. TILDIEM [Concomitant]
  4. ASAFLOW [Concomitant]
  5. ZANTAC [Concomitant]
  6. PROLOPA [Concomitant]
  7. PROLOPA [Concomitant]
  8. PRAVASINE [Concomitant]
  9. APROVEL [Concomitant]
  10. NICOTINE [Concomitant]
  11. DUOVENT [Concomitant]
  12. DUOVENT [Concomitant]
  13. SPIRIVA [Concomitant]
  14. SERETIDE [Concomitant]
     Route: 065
  15. SERETIDE [Concomitant]
     Route: 065
  16. ACEDICONE [Concomitant]
     Route: 065

REACTIONS (1)
  - ANGIONEUROTIC OEDEMA [None]
